FAERS Safety Report 4639046-7 (Version None)
Quarter: 2005Q2

REPORT INFORMATION
  Report Type: 
  Country: None (occurrence: None)
  Receive Date: 20050419
  Receipt Date: 20050408
  Transmission Date: 20051028
  Serious: Yes (Hospitalization)
  Sender: FDA-Public Use
  Company Number: FR-ROCHE-401489

PATIENT
  Age: 53 Year
  Sex: Female

DRUGS (2)
  1. PEG-INTRON [Suspect]
     Route: 058
     Dates: start: 20041027
  2. GLEEVEC [Suspect]
     Route: 048
     Dates: start: 20041027

REACTIONS (2)
  - GENITAL DISORDER FEMALE [None]
  - GENITAL HAEMORRHAGE [None]
